FAERS Safety Report 9303558 (Version 1)
Quarter: 2013Q2

REPORT INFORMATION
  Report Type: Spontaneous
  Country: US (occurrence: None)
  Receive Date: 20130521
  Receipt Date: 20130521
  Transmission Date: 20140414
  Serious: No
  Sender: FDA-Public Use
  Company Number: None

PATIENT
  Age: 49 Year
  Sex: Male
  Weight: 86.18 kg

DRUGS (1)
  1. ULTRAM [Suspect]
     Indication: BACK PAIN
     Dosage: 1 EVERY 4 HRS, BY MOUTH
     Route: 048
     Dates: start: 200806, end: 201304

REACTIONS (7)
  - Muscle spasms [None]
  - Convulsion [None]
  - Vomiting [None]
  - Drug ineffective [None]
  - Tic [None]
  - Nightmare [None]
  - Anger [None]
